FAERS Safety Report 8447354-7 (Version None)
Quarter: 2012Q2

REPORT INFORMATION
  Report Type: 
  Country: None (occurrence: None)
  Receive Date: 20120619
  Receipt Date: 20120614
  Transmission Date: 20120825
  Serious: Yes (Hospitalization)
  Sender: FDA-Public Use
  Company Number: PHHO2012DE009020

PATIENT
  Age: 45 Year
  Sex: Female
  Weight: 46 kg

DRUGS (2)
  1. PROGRAF [Suspect]
     Indication: PANCREAS TRANSPLANT
     Dosage: 2 MG, UNK
     Route: 048
     Dates: start: 20111116
  2. MYCOPHENOLIC ACID [Suspect]
     Indication: PANCREAS TRANSPLANT
     Dosage: 720 MG, UNK
     Route: 048
     Dates: start: 20111116

REACTIONS (2)
  - HAEMOGLOBIN DECREASED [None]
  - IRON METABOLISM DISORDER [None]
